FAERS Safety Report 23757374 (Version 1)
Quarter: 2024Q2

REPORT INFORMATION
  Report Type: Spontaneous
  Country: ZA (occurrence: None)
  Receive Date: 20240418
  Receipt Date: 20240418
  Transmission Date: 20240715
  Serious: Yes (Hospitalization, Other)
  Sender: FDA-Public Use
  Company Number: 2024A089465

PATIENT
  Age: 65 Year
  Sex: Male

DRUGS (7)
  1. BUDESONIDE\FORMOTEROL FUMARATE DIHYDRATE [Suspect]
     Active Substance: BUDESONIDE\FORMOTEROL FUMARATE DIHYDRATE
     Route: 055
  2. ETORICOXIB [Concomitant]
     Active Substance: ETORICOXIB
  3. LEVOTHYROXINE [Concomitant]
     Active Substance: LEVOTHYROXINE\LEVOTHYROXINE SODIUM
  4. LATANOPROST [Concomitant]
     Active Substance: LATANOPROST
  5. BRINZOLAMIDE [Concomitant]
     Active Substance: BRINZOLAMIDE
  6. ALPHAGAN P [Concomitant]
     Active Substance: BRIMONIDINE TARTRATE
  7. XALATAN [Concomitant]
     Active Substance: LATANOPROST

REACTIONS (3)
  - Intracranial aneurysm [Unknown]
  - Aneurysm ruptured [Unknown]
  - Malaise [Not Recovered/Not Resolved]
